FAERS Safety Report 4674940-2 (Version None)
Quarter: 2005Q2

REPORT INFORMATION
  Report Type: 
  Country: None (occurrence: None)
  Receive Date: 20050525
  Receipt Date: 20050513
  Transmission Date: 20051028
  Serious: Yes (Other)
  Sender: FDA-Public Use
  Company Number: 212367

PATIENT
  Age: 53 Year
  Sex: Male

DRUGS (4)
  1. XOLAIR [Suspect]
     Indication: ASTHMA
     Dosage: 375 MG, Q2W, SUBCUTANEOUS
     Route: 058
     Dates: start: 20041129, end: 20050118
  2. ZOLOFT [Concomitant]
  3. DIOVAN [Concomitant]
  4. SINEMET [Concomitant]

REACTIONS (2)
  - MYALGIA [None]
  - SERUM SICKNESS [None]
